FAERS Safety Report 18962704 (Version 1)
Quarter: 2021Q1

REPORT INFORMATION
  Report Type: Spontaneous
  Country: US (occurrence: US)
  Receive Date: 20210303
  Receipt Date: 20210303
  Transmission Date: 20210420
  Serious: Yes (Hospitalization)
  Sender: FDA-Public Use
  Company Number: None

PATIENT
  Age: 37 Year
  Sex: Female
  Weight: 71.4 kg

DRUGS (1)
  1. FERAHEME [Suspect]
     Active Substance: FERUMOXYTOL NON-STOICHIOMETRIC MAGNETITE
     Indication: ANAEMIA OF PREGNANCY
     Dosage: ?          OTHER FREQUENCY:ONCE;?
     Route: 042
     Dates: start: 20210224

REACTIONS (6)
  - Maternal condition affecting foetus [None]
  - Dyspnoea [None]
  - Anaphylactic reaction [None]
  - Infusion related reaction [None]
  - Hot flush [None]
  - Exposure during pregnancy [None]

NARRATIVE: CASE EVENT DATE: 20210226
